FAERS Safety Report 9681709 (Version 1)
Quarter: 2013Q4

REPORT INFORMATION
  Report Type: Spontaneous
  Country: US (occurrence: US)
  Receive Date: 20131111
  Receipt Date: 20131111
  Transmission Date: 20140711
  Serious: Yes (Death)
  Sender: FDA-Public Use
  Company Number: US-GLAXOSMITHKLINE-A1048248A

PATIENT
  Age: 80 Year
  Sex: Male

DRUGS (10)
  1. MEKINIST [Suspect]
     Indication: METASTATIC MALIGNANT MELANOMA
     Dosage: 2MG AT NIGHT
     Route: 048
     Dates: start: 201308
  2. TAFINLAR [Suspect]
     Indication: METASTATIC MALIGNANT MELANOMA
     Dosage: 300MG TWICE PER DAY
     Route: 048
     Dates: start: 201308
  3. ASPIRIN [Concomitant]
  4. LIPITOR [Concomitant]
  5. RISPERDAL [Concomitant]
  6. LEXAPRO [Concomitant]
  7. RYTHMOL SR [Concomitant]
  8. DOCUSATE SODIUM [Concomitant]
  9. CLONAZEPAM [Concomitant]
  10. HYDROCODONE [Concomitant]

REACTIONS (12)
  - Death [Fatal]
  - Multi-organ failure [Unknown]
  - Renal failure [Unknown]
  - Cardiac failure [Unknown]
  - Respiratory failure [Unknown]
  - Intestinal obstruction [Unknown]
  - Metastatic neoplasm [Unknown]
  - Cardiac disorder [Unknown]
  - Skin disorder [Unknown]
  - White blood cell disorder [Unknown]
  - Laboratory test abnormal [Unknown]
  - Drug administration error [Unknown]
